FAERS Safety Report 7407379-7 (Version None)
Quarter: 2011Q2

REPORT INFORMATION
  Report Type: 
  Country: None (occurrence: None)
  Receive Date: 20110411
  Receipt Date: 20110405
  Transmission Date: 20111010
  Serious: Yes (Life-Threatening, Hospitalization)
  Sender: FDA-Public Use
  Company Number: CM-MERCK-1103USA04116

PATIENT
  Age: 27 Year
  Sex: Male

DRUGS (4)
  1. STROMECTOL [Suspect]
     Indication: ONCHOCERCIASIS
     Route: 048
     Dates: start: 20110315
  2. ALBENZA [Suspect]
     Indication: FILARIASIS LYMPHATIC
     Route: 048
     Dates: start: 20110315
  3. ALBENZA [Suspect]
     Indication: ONCHOCERCIASIS
     Route: 048
     Dates: start: 20110315
  4. STROMECTOL [Suspect]
     Indication: FILARIASIS LYMPHATIC
     Route: 048
     Dates: start: 20110315

REACTIONS (5)
  - COMA [None]
  - PRURITUS [None]
  - ENCEPHALOPATHY [None]
  - CONJUNCTIVAL HAEMORRHAGE [None]
  - ASTHENIA [None]
